FAERS Safety Report 16025525 (Version 1)
Quarter: 2019Q1

REPORT INFORMATION
  Report Type: Report from Study
  Country: None (occurrence: AR)
  Receive Date: 20190302
  Receipt Date: 20190302
  Transmission Date: 20190418
  Serious: Yes (Other)
  Sender: FDA-Public Use
  Company Number: AR-ABBVIE-19K-007-2685283-00

PATIENT
  Age: 61 Year
  Sex: Female

DRUGS (4)
  1. PREGABALIN. [Concomitant]
     Active Substance: PREGABALIN
     Indication: PRODUCT USED FOR UNKNOWN INDICATION
  2. PREGABALIN. [Concomitant]
     Active Substance: PREGABALIN
  3. HUMIRA [Suspect]
     Active Substance: ADALIMUMAB
     Indication: RHEUMATOID ARTHRITIS
     Route: 058
     Dates: start: 20120615
  4. HUMIRA [Suspect]
     Active Substance: ADALIMUMAB
     Indication: RHEUMATOID ARTHRITIS
     Route: 058

REACTIONS (7)
  - Dislocation of vertebra [Unknown]
  - Blood cholesterol increased [Recovered/Resolved]
  - Sciatica [Unknown]
  - Pain in extremity [Recovering/Resolving]
  - Blood triglycerides increased [Recovered/Resolved]
  - Cerebrospinal fluid circulation disorder [Unknown]
  - Hernia [Unknown]

NARRATIVE: CASE EVENT DATE: 20190220
